FAERS Safety Report 6127510-3 (Version None)
Quarter: 2009Q1

REPORT INFORMATION
  Report Type: 
  Country: None (occurrence: None)
  Receive Date: 20090323
  Receipt Date: 20090313
  Transmission Date: 20090719
  Serious: Yes (Hospitalization)
  Sender: FDA-Public Use
  Company Number: DE-CELGENEUS-062-C5013-07051525

PATIENT
  Sex: Male
  Weight: 69 kg

DRUGS (5)
  1. CC-5013 [Suspect]
     Indication: MULTIPLE MYELOMA
     Route: 048
     Dates: start: 20070511, end: 20070518
  2. MELPHALAN [Suspect]
     Indication: MULTIPLE MYELOMA
     Dosage: 0.18MG/KG, 12MG
     Route: 065
     Dates: start: 20070511, end: 20070515
  3. PREDNISONE [Suspect]
     Indication: MULTIPLE MYELOMA
     Dosage: 2MG/KG, 135MG
     Route: 065
     Dates: start: 20070511, end: 20070515
  4. ACETYLSALICYLIC ACID [Concomitant]
     Indication: DRUG USE FOR UNKNOWN INDICATION
     Route: 065
  5. PANTOPRAZOL [Concomitant]
     Indication: DRUG USE FOR UNKNOWN INDICATION
     Route: 065

REACTIONS (1)
  - CHOLANGITIS [None]
